FAERS Safety Report 4600876-9 (Version None)
Quarter: 2005Q1

REPORT INFORMATION
  Report Type: 
  Country: None (occurrence: None)
  Receive Date: 20050127
  Receipt Date: 20041020
  Transmission Date: 20050727
  Serious: Yes (Other)
  Sender: FDA-Public Use
  Company Number: USA041081698

PATIENT
  Age: 11 Year
  Sex: Female

DRUGS (1)
  1. STRATTERA [Suspect]
     Dosage: 60 MG DAY
     Dates: start: 20030501

REACTIONS (4)
  - DIARRHOEA [None]
  - TACHYCARDIA [None]
  - URINARY TRACT INFECTION [None]
  - VIRAL INFECTION [None]
